FAERS Safety Report 4472991-4 (Version None)
Quarter: 2004Q4

REPORT INFORMATION
  Report Type: 
  Country: None (occurrence: None)
  Receive Date: 20041013
  Receipt Date: 20041007
  Transmission Date: 20050328
  Serious: Yes (Hospitalization)
  Sender: FDA-Public Use
  Company Number: US-MERCK-0410USA01166

PATIENT
  Age: 58 Year
  Sex: Female

DRUGS (3)
  1. VOLTAREN [Concomitant]
     Route: 065
  2. VIOXX [Suspect]
     Indication: ANKYLOSING SPONDYLITIS
     Route: 048
  3. VIOXX [Suspect]
     Route: 048

REACTIONS (1)
  - MYOCARDIAL INFARCTION [None]
